FAERS Safety Report 4319257-0 (Version None)
Quarter: 2004Q1

REPORT INFORMATION
  Report Type: 
  Country: None (occurrence: None)
  Receive Date: 20040316
  Receipt Date: 20040303
  Transmission Date: 20041129
  Serious: Yes (Hospitalization)
  Sender: FDA-Public Use
  Company Number: RENA-10869

PATIENT
  Age: 64 Year
  Sex: Male
  Weight: 121.9 kg

DRUGS (8)
  1. RENAGEL [Suspect]
     Indication: HYPERPHOSPHATAEMIA
     Dosage: 3.2 G DAILY PO
     Route: 048
     Dates: start: 20030521
  2. AMLODIPINE [Concomitant]
  3. ELEMENTAL CALCIUM [Concomitant]
  4. ENALAPRIL MALEATE [Concomitant]
  5. QUININE [Concomitant]
  6. REPLAVITE [Concomitant]
  7. EPOGEN [Concomitant]
  8. IRON DEXTRAN [Concomitant]

REACTIONS (7)
  - ANAEMIA [None]
  - BILIARY COLIC [None]
  - CHOLELITHIASIS [None]
  - CONSTIPATION [None]
  - FAECES PALE [None]
  - JAUNDICE [None]
  - TREATMENT NONCOMPLIANCE [None]
